FAERS Safety Report 8327399-8 (Version None)
Quarter: 2012Q2

REPORT INFORMATION
  Report Type: 
  Country: None (occurrence: None)
  Receive Date: 20120430
  Receipt Date: 20120413
  Transmission Date: 20120825
  Serious: Yes (Other)
  Sender: FDA-Public Use
  Company Number: US-1191389

PATIENT
  Age: 68 Year
  Sex: Female

DRUGS (3)
  1. PREDNISOLONE ACETATE [Concomitant]
  2. NEVANAC [Suspect]
     Indication: POSTOPERATIVE CARE
     Dosage: (1 GTT TID OS OPHTHALMIC)
     Route: 047
     Dates: start: 20120220, end: 20120304
  3. POLYTRIM [Concomitant]

REACTIONS (2)
  - PUNCTATE KERATITIS [None]
  - POST PROCEDURAL COMPLICATION [None]
